FAERS Safety Report 4513059-8 (Version None)
Quarter: 2004Q4

REPORT INFORMATION
  Report Type: 
  Country: None (occurrence: None)
  Receive Date: 20040928
  Receipt Date: 20040712
  Transmission Date: 20050328
  Serious: No
  Sender: FDA-Public Use
  Company Number: 04P-163-0266716-00

PATIENT
  Age: 56 Year
  Sex: Female
  Weight: 81.6475 kg

DRUGS (7)
  1. HUMIRA [Suspect]
     Indication: RHEUMATOID ARTHRITIS
     Dosage: 40 MG, 1 IN 2 WK, SUBCUTANEOUS
     Route: 058
     Dates: start: 20040604
  2. METHOTREXATE [Concomitant]
  3. METHOTREXATE [Concomitant]
  4. PREDNISONE [Concomitant]
  5. VERAPAMIL HYDROCHLORIDE [Concomitant]
  6. GLIBOMET [Concomitant]
  7. FOLIC ACID [Concomitant]

REACTIONS (3)
  - DEPRESSION [None]
  - LOCALISED INFECTION [None]
  - SWELLING FACE [None]
